FAERS Safety Report 14304000 (Version 1)
Quarter: 2017Q4

REPORT INFORMATION
  Report Type: Spontaneous
  Country: FR (occurrence: FR)
  Receive Date: 20171219
  Receipt Date: 20171219
  Transmission Date: 20180321
  Serious: Yes (Life-Threatening, Hospitalization, Other)
  Sender: FDA-Public Use
  Company Number: FR-OTSUKA-KJ20106276

PATIENT

DRUGS (8)
  1. ARIPIPRAZOLE. [Suspect]
     Active Substance: ARIPIPRAZOLE
     Indication: SCHIZOID PERSONALITY DISORDER
     Route: 048
     Dates: start: 20100930, end: 20101020
  2. VENLAFAXINE XR [Concomitant]
     Active Substance: VENLAFAXINE HYDROCHLORIDE
     Indication: DEPRESSION
     Dosage: 75 MG, BID
     Route: 048
     Dates: start: 20100913
  3. XANAX [Concomitant]
     Active Substance: ALPRAZOLAM
     Route: 065
     Dates: start: 20100717, end: 20101023
  4. LOXAPAC [Concomitant]
     Active Substance: LOXAPINE SUCCINATE
     Indication: ANXIOLYTIC THERAPY
     Route: 065
     Dates: start: 20100719, end: 20100726
  5. ZYPREXA [Suspect]
     Active Substance: OLANZAPINE
     Indication: ANXIETY
     Route: 048
     Dates: start: 20100826, end: 20100921
  6. OLANZAPINE. [Suspect]
     Active Substance: OLANZAPINE
     Indication: ANXIETY
     Dosage: 20MG/D 26AUG-21SEP2010
     Route: 048
     Dates: start: 20100826, end: 20100921
  7. ALPRAZOLAM. [Concomitant]
     Active Substance: ALPRAZOLAM
     Indication: ANXIETY
     Dosage: 2 G, QD
     Route: 048
     Dates: start: 20100717, end: 20101023
  8. EFFEXOR [Concomitant]
     Active Substance: VENLAFAXINE HYDROCHLORIDE
     Route: 065
     Dates: start: 20100913

REACTIONS (2)
  - Suicide attempt [Unknown]
  - Persecutory delusion [Recovered/Resolved with Sequelae]

NARRATIVE: CASE EVENT DATE: 20101020
